FAERS Safety Report 6199121-5 (Version None)
Quarter: 2009Q2

REPORT INFORMATION
  Report Type: 
  Country: None (occurrence: None)
  Receive Date: 20090522
  Receipt Date: 20090512
  Transmission Date: 20091009
  Serious: Yes (Hospitalization)
  Sender: FDA-Public Use
  Company Number: JP-ELI_LILLY_AND_COMPANY-JP200905003930

PATIENT
  Age: 57 Year
  Sex: Male

DRUGS (7)
  1. ZYPREXA [Suspect]
     Indication: PSYCHIATRIC SYMPTOM
     Dosage: 5 MG, DAILY (1/D)
     Route: 048
     Dates: start: 20080901, end: 20090101
  2. ZYPREXA [Suspect]
     Dosage: 2.5 MG, DAILY (1/D)
     Route: 048
     Dates: start: 20090101, end: 20090511
  3. LORAMET [Concomitant]
     Indication: INSOMNIA
     Dosage: 1 MG, DAILY (1/D)
     Route: 048
     Dates: start: 20090316, end: 20090511
  4. SEROQUEL [Concomitant]
     Dosage: 25 MG, DAILY (1/D)
     Route: 048
     Dates: start: 20081125, end: 20090201
  5. BENZALIN [Concomitant]
     Dosage: 5 MG, DAILY (1/D)
     Route: 048
     Dates: start: 20081008, end: 20081001
  6. MAGMITT [Concomitant]
     Dosage: 3 D/F, UNK
     Route: 048
     Dates: start: 20081125, end: 20090201
  7. UBRETID [Concomitant]
     Dosage: 5 MG, UNK
     Route: 048
     Dates: start: 20081125, end: 20090201

REACTIONS (4)
  - PRURITUS [None]
  - PSYCHIATRIC SYMPTOM [None]
  - RASH [None]
  - SYPHILIS [None]
